FAERS Safety Report 20829539 (Version 6)
Quarter: 2025Q1

REPORT INFORMATION
  Report Type: Spontaneous
  Country: US (occurrence: US)
  Receive Date: 20220513
  Receipt Date: 20250214
  Transmission Date: 20250408
  Serious: No
  Sender: PFIZER
  Company Number: US-PFIZER INC-202200584312

PATIENT
  Age: 65 Year
  Sex: Female
  Weight: 99.79 kg

DRUGS (2)
  1. BOSULIF [Suspect]
     Active Substance: BOSUTINIB MONOHYDRATE
     Dosage: 400 MG, DAILY, TAKE 4 TABLETS (400 MG) DAILY WITH FOOD
     Route: 048
     Dates: start: 2020
  2. BOSULIF [Suspect]
     Active Substance: BOSUTINIB MONOHYDRATE
     Dosage: 400 MG, DAILY, TAKE 4 TABLETS DAILY
     Route: 048

REACTIONS (4)
  - Fatigue [Unknown]
  - Abdominal discomfort [Unknown]
  - Diarrhoea [Unknown]
  - Headache [Unknown]
